FAERS Safety Report 6341562-7 (Version None)
Quarter: 2009Q3

REPORT INFORMATION
  Report Type: 
  Country: None (occurrence: None)
  Receive Date: 20090902
  Receipt Date: 20090902
  Transmission Date: 20100115
  Serious: Yes (Death)
  Sender: FDA-Public Use
  Company Number: None

PATIENT
  Age: 79 Year
  Sex: Female
  Weight: 58.6047 kg

DRUGS (1)
  1. IPRATROPIUM BROMIDE [Suspect]
     Indication: RESPIRATORY FAILURE
     Dosage: 1 VIAL Q 4 HOURS INHAL
     Route: 055
     Dates: start: 20090821, end: 20090823

REACTIONS (1)
  - DEATH [None]
